FAERS Safety Report 6637693-4 (Version None)
Quarter: 2010Q1

REPORT INFORMATION
  Report Type: 
  Country: None (occurrence: None)
  Receive Date: 20100315
  Receipt Date: 20100315
  Transmission Date: 20100710
  Serious: Yes (Other)
  Sender: FDA-Public Use
  Company Number: None

PATIENT
  Age: 8 Year
  Sex: Male
  Weight: 24.0406 kg

DRUGS (1)
  1. ADDERALL XR 15 [Suspect]
     Indication: ATTENTION DEFICIT/HYPERACTIVITY DISORDER
     Dosage: 15MG 1 PO
     Route: 048
     Dates: start: 20080826, end: 20100312

REACTIONS (4)
  - ABNORMAL BEHAVIOUR [None]
  - GASTRIC DISORDER [None]
  - HEADACHE [None]
  - PRODUCT SUBSTITUTION ISSUE [None]
